FAERS Safety Report 5367492-5 (Version None)
Quarter: 2007Q2

REPORT INFORMATION
  Report Type: 
  Country: None (occurrence: None)
  Receive Date: 20070622
  Receipt Date: 20061002
  Transmission Date: 20071010
  Serious: No
  Sender: FDA-Public Use
  Company Number: US-ASTRAZENECA-2006UW19122

PATIENT
  Age: 44 Year
  Sex: Female
  Weight: 81.6 kg

DRUGS (7)
  1. PULMICORT [Suspect]
     Indication: ASTHMA
     Dosage: 200 DOSES/UNIT
     Route: 055
     Dates: start: 20060101
  2. PROTONIX [Concomitant]
  3. MOTRIN [Concomitant]
  4. SYNTHROID [Concomitant]
  5. KLONOPIN [Concomitant]
  6. CELEXA [Concomitant]
  7. FLEXERIL [Concomitant]

REACTIONS (2)
  - DRUG INEFFECTIVE [None]
  - ILL-DEFINED DISORDER [None]
